FAERS Safety Report 9186399 (Version 2)
Quarter: 2013Q2

REPORT INFORMATION
  Report Type: Spontaneous
  Country: CO (occurrence: CO)
  Receive Date: 20130325
  Receipt Date: 20130621
  Transmission Date: 20140414
  Serious: Yes (Other)
  Sender: FDA-Public Use
  Company Number: CO-009507513-1303COL010962

PATIENT
  Age: 35 Year
  Sex: Female

DRUGS (2)
  1. REBETOL [Suspect]
     Indication: CHRONIC HEPATITIS C
     Dosage: 800 MG DAILY
     Route: 048
     Dates: start: 20130316, end: 20130324
  2. PEG-INTRON [Suspect]
     Indication: CHRONIC HEPATITIS C
     Dosage: 80 MCG QW
     Route: 058
     Dates: start: 20130316, end: 20130324

REACTIONS (1)
  - Thrombocytopenia [Recovered/Resolved]
